FAERS Safety Report 24267713 (Version 1)
Quarter: 2024Q3

REPORT INFORMATION
  Report Type: Spontaneous
  Country: US (occurrence: US)
  Receive Date: 20240830
  Receipt Date: 20240830
  Transmission Date: 20241016
  Serious: Yes (Hospitalization, Other)
  Sender: PFIZER
  Company Number: US-PFIZER INC-202400245135

PATIENT
  Age: 30 Year
  Sex: Male
  Weight: 77.11 kg

DRUGS (2)
  1. OXBRYTA [Suspect]
     Active Substance: VOXELOTOR
     Dosage: UNK
     Dates: start: 2020
  2. HYDROXYUREA [Suspect]
     Active Substance: HYDROXYUREA
     Dosage: UNK

REACTIONS (1)
  - Sickle cell anaemia with crisis [Unknown]

NARRATIVE: CASE EVENT DATE: 20220101
